FAERS Safety Report 5226635-4 (Version None)
Quarter: 2007Q1

REPORT INFORMATION
  Report Type: 
  Country: None (occurrence: None)
  Receive Date: 20070129
  Receipt Date: 20061023
  Transmission Date: 20070707
  Serious: Yes (Other)
  Sender: FDA-Public Use
  Company Number: None

PATIENT
  Age: 3 Day
  Sex: Male
  Weight: 1 kg

DRUGS (5)
  1. AZITHROMYCIN [Suspect]
     Indication: SEPSIS
     Dosage: 14.3 MG, ONE TIME, IV (042)
     Dates: start: 20061021
  2. AMPICILLIN [Concomitant]
  3. CALCIUM GLUCONATE [Concomitant]
  4. GENTAMICIN SULFATE [Concomitant]
  5. SODIUM BICARBONATE [Concomitant]

REACTIONS (1)
  - INTRAVENTRICULAR HAEMORRHAGE NEONATAL [None]
